FAERS Safety Report 16803109 (Version 1)
Quarter: 2019Q3

REPORT INFORMATION
  Report Type: Spontaneous
  Country: GB (occurrence: GB)
  Receive Date: 20190913
  Receipt Date: 20190913
  Transmission Date: 20191005
  Serious: Yes (Disabling)
  Sender: FDA-Public Use
  Company Number: GB-TEVA-2019-GB-1105888

PATIENT
  Age: 73 Year
  Sex: Female
  Weight: 60 kg

DRUGS (16)
  1. TRIMETHOPRIM. [Suspect]
     Active Substance: TRIMETHOPRIM
     Dosage: 400 MG
     Dates: start: 20190728, end: 20190731
  2. CO-AMOXICLAV [Concomitant]
     Active Substance: AMOXICILLIN\CLAVULANATE POTASSIUM
     Dates: start: 20190724, end: 20190807
  3. METOCLOPRAMIDE. [Concomitant]
     Active Substance: METOCLOPRAMIDE
     Dosage: 3 DF
     Dates: start: 20190729, end: 20190810
  4. CARBOCISTEINE [Concomitant]
     Active Substance: CARBOCYSTEINE
     Dosage: 4 DF
     Dates: start: 20161212
  5. FENBID [Concomitant]
     Active Substance: IBUPROFEN
     Dosage: APPLY 3 DF
     Dates: start: 20190523, end: 20190606
  6. DIAZEPAM. [Concomitant]
     Active Substance: DIAZEPAM
     Dosage: 1 DF
     Dates: start: 20190618, end: 20190702
  7. QUININE [Concomitant]
     Active Substance: QUININE
     Dosage: 1 DF
     Dates: start: 20161212
  8. SALMETEROL [Concomitant]
     Active Substance: SALMETEROL
     Dosage: 4 DF
     Route: 055
     Dates: start: 20161212
  9. SALBUTAMOL [Concomitant]
     Active Substance: ALBUTEROL
     Dosage: 2 DF
     Route: 055
     Dates: start: 20161212
  10. LANSOPRAZOLE. [Concomitant]
     Active Substance: LANSOPRAZOLE
     Dosage: 1 DF
     Dates: start: 20190509
  11. ADCAL [Concomitant]
     Dosage: 4 DF
     Dates: start: 20161212
  12. FLUCONAZOLE. [Concomitant]
     Active Substance: FLUCONAZOLE
     Dosage: USE AS DIRECTED
     Dates: start: 20190806, end: 20190807
  13. NITROFURANTOIN. [Concomitant]
     Active Substance: NITROFURANTOIN
     Dosage: 2 DF
     Dates: start: 20190720, end: 20190727
  14. ACCORD HEALTHCARE LETROZOLE [Concomitant]
     Dosage: (ACCORD BRAND ONLY) 1 DF
     Dates: start: 20161212
  15. QVAR [Concomitant]
     Active Substance: BECLOMETHASONE DIPROPIONATE
     Dosage: 2 DF
     Route: 055
     Dates: start: 20161212
  16. ZAPAIN [Concomitant]
     Active Substance: ACETAMINOPHEN\CODEINE PHOSPHATE
     Dosage: TAKE 1 OR 2 4 TIMES/DAY
     Dates: start: 20190618, end: 20190619

REACTIONS (1)
  - Rash generalised [Recovering/Resolving]
